FAERS Safety Report 16386748 (Version 2)
Quarter: 2019Q3

REPORT INFORMATION
  Report Type: Spontaneous
  Country: FR (occurrence: FR)
  Receive Date: 20190604
  Receipt Date: 20190913
  Transmission Date: 20191004
  Serious: Yes (Hospitalization, Other)
  Sender: FDA-Public Use
  Company Number: FR-AUROBINDO-AUR-APL-2019-031270

PATIENT

DRUGS (7)
  1. TOPALGIC [TRAMADOL HYDROCHLORIDE] [Suspect]
     Active Substance: TRAMADOL HYDROCHLORIDE
     Indication: PAIN
     Dosage: UNK
     Route: 041
     Dates: start: 20190326, end: 20190417
  2. NEFOPAM HYDROCHLORIDE [Suspect]
     Active Substance: NEFOPAM HYDROCHLORIDE
     Indication: PAIN
     Dosage: UNK
     Route: 041
  3. CUBICIN [Suspect]
     Active Substance: DAPTOMYCIN
     Indication: INFECTION
     Dosage: 850 MILLIGRAM, ONCE A DAY (QD)
     Route: 041
     Dates: start: 20190411, end: 20190418
  4. NEFOPAM HYDROCHLORIDE [Suspect]
     Active Substance: NEFOPAM HYDROCHLORIDE
     Dosage: 10 MILLIGRAM PER MILLILITRE, UNK
     Route: 041
     Dates: start: 20190326
  5. PANTOPRAZOL ARROW 40 MG  POWDER FOR SOLUTION FOR INJECTION [Suspect]
     Active Substance: PANTOPRAZOLE SODIUM
     Indication: GASTROOESOPHAGEAL REFLUX DISEASE
     Dosage: 40 MILLIGRAM, ONCE A DAY (QD)
     Route: 041
     Dates: start: 20190412, end: 20190418
  6. OXYNORM [Suspect]
     Active Substance: OXYCODONE HYDROCHLORIDE
     Indication: PAIN
     Dosage: 10 MILLIGRAM PER MILLILITRE, UNK
     Route: 041
     Dates: start: 20190411, end: 20190415
  7. NEFOPAM MEDISOL [Suspect]
     Active Substance: NEFOPAM HYDROCHLORIDE
     Indication: PAIN
     Dosage: UNK
     Route: 041
     Dates: start: 20190326

REACTIONS (1)
  - Hallucination, visual [Recovered/Resolved]

NARRATIVE: CASE EVENT DATE: 20190413
